FAERS Safety Report 6651903-9 (Version None)
Quarter: 2010Q1

REPORT INFORMATION
  Report Type: 
  Country: None (occurrence: None)
  Receive Date: 20100325
  Receipt Date: 20100316
  Transmission Date: 20100710
  Serious: Yes (Other)
  Sender: FDA-Public Use
  Company Number: US-PURDUE-USA-2010-0042843

PATIENT
  Age: 71 Year
  Sex: Female

DRUGS (7)
  1. MORPHINE SULFATE [Suspect]
     Indication: DRUG USE FOR UNKNOWN INDICATION
     Dosage: 350 MG, UNK
  2. OXYCODONE HYDROCHLORIDE [Suspect]
     Indication: DRUG USE FOR UNKNOWN INDICATION
     Dosage: 3 MG, UNK
  3. SOMA [Suspect]
     Indication: DRUG USE FOR UNKNOWN INDICATION
  4. ROXICODONE [Suspect]
     Indication: DRUG USE FOR UNKNOWN INDICATION
  5. OXYMORPHONE [Suspect]
     Indication: DRUG USE FOR UNKNOWN INDICATION
  6. XANAX [Suspect]
     Indication: DRUG USE FOR UNKNOWN INDICATION
     Dosage: 1 MG, UNK
  7. NEURONTIN [Suspect]
     Indication: DRUG USE FOR UNKNOWN INDICATION

REACTIONS (8)
  - DISTURBANCE IN ATTENTION [None]
  - FIBROMYALGIA [None]
  - INFLUENZA LIKE ILLNESS [None]
  - LIGAMENT PAIN [None]
  - MYALGIA [None]
  - PAIN [None]
  - SLEEP DISORDER [None]
  - TENDON PAIN [None]
